FAERS Safety Report 4311967-4 (Version None)
Quarter: 2004Q1

REPORT INFORMATION
  Report Type: 
  Country: None (occurrence: None)
  Receive Date: 20040303
  Receipt Date: 20040224
  Transmission Date: 20041129
  Serious: Yes (Life-Threatening, Hospitalization)
  Sender: FDA-Public Use
  Company Number: 2004AP01148

PATIENT
  Age: 73 Year
  Sex: Female

DRUGS (1)
  1. IRESSA [Suspect]
     Indication: CARCINOMA
     Dosage: 250 MG DAILY PO
     Route: 048
     Dates: start: 20031030, end: 20031115

REACTIONS (5)
  - DIARRHOEA [None]
  - HEPATIC FUNCTION ABNORMAL [None]
  - INTERSTITIAL LUNG DISEASE [None]
  - RENAL FUNCTION TEST ABNORMAL [None]
  - STOMATITIS [None]
